FAERS Safety Report 4587105-X (Version None)
Quarter: 2005Q1

REPORT INFORMATION
  Report Type: 
  Country: None (occurrence: None)
  Receive Date: 20050214
  Receipt Date: 20050202
  Transmission Date: 20050727
  Serious: Yes (Other)
  Sender: FDA-Public Use
  Company Number: HQWYE699429NOV04

PATIENT
  Age: 80 Year
  Sex: Female

DRUGS (6)
  1. EFFEXOR XR [Suspect]
     Indication: DEPRESSION
     Dosage: 75 MG 1X PER 1 DAY, ORAL
     Route: 048
     Dates: start: 20040809, end: 20041006
  2. TYLENOL [Concomitant]
  3. SINGULAIR [Concomitant]
  4. HCT (HYDROCHLOROTHIAZIDE) [Concomitant]
  5. FOSAMAX [Concomitant]
  6. EFFEXOR XR [Suspect]
     Dosage: ORAL
     Route: 048
     Dates: start: 20041201

REACTIONS (1)
  - HYPONATRAEMIA [None]
